FAERS Safety Report 17893551 (Version 1)
Quarter: 2020Q2

REPORT INFORMATION
  Report Type: Spontaneous
  Country: ES (occurrence: ES)
  Receive Date: 20200615
  Receipt Date: 20200615
  Transmission Date: 20200714
  Serious: Yes (Other)
  Sender: FDA-Public Use
  Company Number: ES-CADILA HEALTHCARE LIMITED-ES-ZYDUS-027579

PATIENT

DRUGS (3)
  1. CLARITROMICINA [Suspect]
     Active Substance: CLARITHROMYCIN
     Indication: HELICOBACTER INFECTION
     Dosage: 500 MILLIGRAM,(INTERVAL :12 HOURS)
     Route: 048
     Dates: start: 20180123
  2. OMEPRAZOLE. [Suspect]
     Active Substance: OMEPRAZOLE
     Indication: HELICOBACTER INFECTION
     Dates: start: 201801
  3. AMOXICILLIN. [Suspect]
     Active Substance: AMOXICILLIN
     Indication: HELICOBACTER INFECTION
     Dates: start: 201801

REACTIONS (6)
  - Anxiety [Unknown]
  - Paraesthesia [Unknown]
  - Flatulence [Unknown]
  - Ageusia [Unknown]
  - Feeling hot [Unknown]
  - Affect lability [Unknown]

NARRATIVE: CASE EVENT DATE: 20180123
